FAERS Safety Report 7752686-1 (Version None)
Quarter: 2011Q3

REPORT INFORMATION
  Report Type: 
  Country: None (occurrence: None)
  Receive Date: 20110915
  Receipt Date: 20110912
  Transmission Date: 20111222
  Serious: Yes (Other)
  Sender: FDA-Public Use
  Company Number: DE-PFIZER INC-2011213869

PATIENT
  Sex: Female

DRUGS (2)
  1. XALATAN [Suspect]
  2. TRUSOPT [Suspect]

REACTIONS (4)
  - LACERATION [None]
  - BLOOD PRESSURE DECREASED [None]
  - HEART RATE DECREASED [None]
  - FALL [None]
